FAERS Safety Report 14730387 (Version 6)
Quarter: 2018Q3

REPORT INFORMATION
  Report Type: Spontaneous
  Country: US (occurrence: BR)
  Receive Date: 20180406
  Receipt Date: 20180928
  Transmission Date: 20181010
  Serious: Yes (Hospitalization, Other)
  Sender: FDA-Public Use
  Company Number: US-SUNOVION-2018SUN001245

PATIENT
  Sex: Female
  Weight: 108 kg

DRUGS (2)
  1. GLYCOPYRROLATE. [Suspect]
     Active Substance: GLYCOPYRROLATE
     Indication: PRODUCT USED FOR UNKNOWN INDICATION
     Dosage: UNK (0.05 MG), QD (MORNING)
     Route: 065
     Dates: start: 201712
  2. FORASEQ [Suspect]
     Active Substance: BUDESONIDE\FORMOTEROL FUMARATE
     Indication: ASTHMA
     Dosage: 2 DF (12\400 UG), BID (MORNING AND NIGHT)
     Route: 055

REACTIONS (7)
  - Dyspnoea [Not Recovered/Not Resolved]
  - Drug ineffective [Unknown]
  - Incorrect dose administered [Not Recovered/Not Resolved]
  - Device malfunction [Not Recovered/Not Resolved]
  - Drug dependence [Unknown]
  - Hernia [Unknown]
  - Wrong technique in product usage process [Not Recovered/Not Resolved]
